FAERS Safety Report 16927515 (Version 1)
Quarter: 2019Q4

REPORT INFORMATION
  Report Type: Spontaneous
  Country: CN (occurrence: CN)
  Receive Date: 20191016
  Receipt Date: 20191016
  Transmission Date: 20200122
  Serious: Yes (Other)
  Sender: FDA-Public Use
  Company Number: NVSC2019CN000835

PATIENT
  Age: 70 Year
  Sex: Male

DRUGS (1)
  1. EVEROLIMUS. [Suspect]
     Active Substance: EVEROLIMUS
     Indication: SQUAMOUS CELL CARCINOMA OF LUNG
     Dosage: 10 MG, QD
     Route: 065
     Dates: start: 20170324

REACTIONS (7)
  - Mouth ulceration [Recovering/Resolving]
  - Bronchostenosis [Unknown]
  - Product use in unapproved indication [Unknown]
  - Malignant neoplasm progression [Unknown]
  - Stomatitis [Unknown]
  - Squamous cell carcinoma of lung [Unknown]
  - Pleural effusion [Unknown]
